FAERS Safety Report 7865375-X (Version None)
Quarter: 2011Q4

REPORT INFORMATION
  Report Type: 
  Country: None (occurrence: None)
  Receive Date: 20111028
  Receipt Date: 20101208
  Transmission Date: 20120403
  Serious: No
  Sender: FDA-Public Use
  Company Number: US-GLAXOSMITHKLINE-A0898580A

PATIENT
  Age: 61 Year
  Sex: Female

DRUGS (4)
  1. ADVAIR DISKUS 100/50 [Suspect]
     Indication: RESPIRATORY TRACT INFECTION VIRAL
     Dosage: 1PUFF TWICE PER DAY
     Route: 055
     Dates: start: 20101206
  2. PREDNISONE [Concomitant]
  3. LORATADINE [Concomitant]
  4. THYROID MEDICATION [Concomitant]

REACTIONS (4)
  - PALPITATIONS [None]
  - ACCIDENTAL OVERDOSE [None]
  - FEELING JITTERY [None]
  - NON-CARDIAC CHEST PAIN [None]
